FAERS Safety Report 17579048 (Version 2)
Quarter: 2022Q2

REPORT INFORMATION
  Report Type: Spontaneous
  Country: CA (occurrence: CA)
  Receive Date: 20200325
  Receipt Date: 20220412
  Transmission Date: 20220721
  Serious: Yes (Hospitalization)
  Sender: FDA-Public Use
  Company Number: CA-SPECGX-T202000571

PATIENT
  Age: 55 Year
  Sex: Female

DRUGS (11)
  1. METHADOSE [Suspect]
     Active Substance: METHADONE HYDROCHLORIDE
     Indication: Pelvic pain
     Dosage: 15 MILLIGRAM, TID
     Route: 065
  2. METHADOSE [Suspect]
     Active Substance: METHADONE HYDROCHLORIDE
     Dosage: 12 MILLIGRAM, TID
     Route: 065
  3. GABAPENTIN [Suspect]
     Active Substance: GABAPENTIN
     Indication: Pelvic pain
     Dosage: 4 MILLIGRAM, TID
     Route: 048
  4. HYDROMORPHONE HYDROCHLORIDE [Suspect]
     Active Substance: HYDROMORPHONE HYDROCHLORIDE
     Indication: Pelvic pain
     Dosage: 12.5 MILLIGRAM, UNK
     Route: 058
  5. HYDROMORPHONE HYDROCHLORIDE [Suspect]
     Active Substance: HYDROMORPHONE HYDROCHLORIDE
     Dosage: UNK
     Route: 058
  6. HYDROMORPHONE HYDROCHLORIDE [Suspect]
     Active Substance: HYDROMORPHONE HYDROCHLORIDE
     Dosage: 15 MILLIGRAM, UNK
     Route: 058
  7. KETAMINE HYDROCHLORIDE [Suspect]
     Active Substance: KETAMINE HYDROCHLORIDE
     Indication: Pelvic pain
     Dosage: 500 MILLIGRAM, QD
     Route: 058
  8. KETAMINE HYDROCHLORIDE [Suspect]
     Active Substance: KETAMINE HYDROCHLORIDE
     Dosage: UNK
     Route: 030
  9. SUFENTANIL CITRATE [Suspect]
     Active Substance: SUFENTANIL CITRATE
     Indication: Pelvic pain
     Dosage: UNK (0.9)
     Route: 060
  10. SUFENTANIL CITRATE [Suspect]
     Active Substance: SUFENTANIL CITRATE
     Dosage: UNK, THREE TIMES A DAY
     Route: 060
  11. SUFENTANIL CITRATE [Suspect]
     Active Substance: SUFENTANIL CITRATE
     Dosage: 75 MICROGRAM
     Route: 060

REACTIONS (2)
  - Delirium [Recovering/Resolving]
  - Drug ineffective for unapproved indication [Recovering/Resolving]
